FAERS Safety Report 21106451 (Version 1)
Quarter: 2022Q3

REPORT INFORMATION
  Report Type: Spontaneous
  Country: AU (occurrence: AU)
  Receive Date: 20220720
  Receipt Date: 20220720
  Transmission Date: 20221027
  Serious: Yes (Other)
  Sender: FDA-Public Use
  Company Number: AU-GE HEALTHCARE-2022CSU004901

PATIENT
  Age: 35 Year
  Sex: Female
  Weight: 70 kg

DRUGS (4)
  1. OMNIPAQUE [Suspect]
     Active Substance: IOHEXOL
     Indication: Computerised tomogram thorax
     Dosage: 40 ML, SINGLE
     Route: 042
     Dates: start: 20220713, end: 20220713
  2. OMNIPAQUE [Suspect]
     Active Substance: IOHEXOL
     Indication: Chest pain
  3. OMNIPAQUE [Suspect]
     Active Substance: IOHEXOL
     Indication: Pulmonary embolism
  4. PANTOPRAZOLE [Concomitant]
     Active Substance: PANTOPRAZOLE
     Indication: Reflux gastritis
     Dosage: 40 MG
     Route: 048

REACTIONS (2)
  - Dysphonia [Recovered/Resolved]
  - Cough [Recovered/Resolved]

NARRATIVE: CASE EVENT DATE: 20220713
